FAERS Safety Report 7457654-5 (Version None)
Quarter: 2011Q2

REPORT INFORMATION
  Report Type: 
  Country: None (occurrence: None)
  Receive Date: 20110504
  Receipt Date: 20110421
  Transmission Date: 20111010
  Serious: No
  Sender: FDA-Public Use
  Company Number: US-B.I. PHARMACEUTICALS,INC./RIDGEFIELD-2011-BP-11537BP

PATIENT
  Sex: Female

DRUGS (7)
  1. PRADAXA [Suspect]
     Indication: PULMONARY EMBOLISM
     Dosage: 300 MG
     Route: 048
     Dates: start: 20110125, end: 20110201
  2. FAMOTIDINE [Concomitant]
     Indication: HELICOBACTER INFECTION
     Dosage: 20 MG
     Route: 048
  3. SYNTHROID [Concomitant]
     Indication: HYPOTHYROIDISM
     Route: 048
  4. PRADAXA [Suspect]
     Indication: FACTOR V DEFICIENCY
     Dosage: 75 MG
     Route: 048
     Dates: start: 20110201, end: 20110201
  5. PEPCID [Concomitant]
     Indication: HELICOBACTER INFECTION
     Dosage: 40 MG
     Route: 048
  6. LYRICA [Concomitant]
     Indication: MUSCULOSKELETAL DISCOMFORT
     Dosage: 150 MG
     Route: 048
     Dates: start: 20110119
  7. PRADAXA [Suspect]
     Dosage: 300 MG
     Route: 048
     Dates: start: 20110201

REACTIONS (2)
  - CONTUSION [None]
  - ATROPHIC VULVOVAGINITIS [None]
